FAERS Safety Report 18685613 (Version 7)
Quarter: 2021Q2

REPORT INFORMATION
  Report Type: Report from Study
  Country: US (occurrence: US)
  Receive Date: 20201230
  Receipt Date: 20210412
  Transmission Date: 20210717
  Serious: Yes (Hospitalization, Other)
  Sender: FDA-Public Use
  Company Number: US-SEATTLE GENETICS-2020SGN05777

PATIENT
  Sex: Female

DRUGS (2)
  1. TUCATINIB [Suspect]
     Active Substance: TUCATINIB
     Indication: BREAST CANCER FEMALE
  2. XELODA [Concomitant]
     Active Substance: CAPECITABINE
     Indication: BREAST CANCER FEMALE
     Dosage: UNK
     Dates: start: 20210111

REACTIONS (15)
  - Thrombosis [Unknown]
  - Skin discolouration [Unknown]
  - Myocardial infarction [Unknown]
  - Dyspnoea [Unknown]
  - Anxiety [Unknown]
  - Nausea [Unknown]
  - Product dose omission issue [Unknown]
  - Fall [Unknown]
  - Fatigue [Unknown]
  - Feeling abnormal [Unknown]
  - Cerebrovascular accident [Unknown]
  - Hospitalisation [Unknown]
  - Wound [Unknown]
  - Memory impairment [Unknown]
  - Headache [Unknown]
